FAERS Safety Report 8141064-1 (Version None)
Quarter: 2012Q1

REPORT INFORMATION
  Report Type: 
  Country: None (occurrence: None)
  Receive Date: 20120216
  Receipt Date: 20120206
  Transmission Date: 20120608
  Serious: Yes (Other)
  Sender: FDA-Public Use
  Company Number: US-SANOFI-AVENTIS-2012SA007975

PATIENT
  Age: 58 Year
  Sex: Female

DRUGS (2)
  1. FEXOFENADINE HYDROCHLORIDE/PSEUDOEPHEDRINE HYDROCHLORIDE [Suspect]
     Route: 048
     Dates: start: 20050101, end: 20120101
  2. FEXOFENADINE HYDROCHLORIDE/PSEUDOEPHEDRINE HYDROCHLORIDE [Suspect]
     Route: 048
     Dates: start: 20120101

REACTIONS (1)
  - BREAST CANCER [None]
